FAERS Safety Report 7490748-7 (Version None)
Quarter: 2011Q2

REPORT INFORMATION
  Report Type: 
  Country: None (occurrence: None)
  Receive Date: 20110519
  Receipt Date: 20081009
  Transmission Date: 20111010
  Serious: Yes (Hospitalization, Other)
  Sender: FDA-Public Use
  Company Number: US-BAYER-200835450NA

PATIENT
  Age: 37 Year
  Sex: Male
  Weight: 109 kg

DRUGS (5)
  1. HEPARIN [Concomitant]
     Dosage: 35,000 UNITS IV FLUSH
     Route: 042
     Dates: start: 20060308, end: 20060308
  2. FENTANYL [Concomitant]
     Dosage: 100MCG TO 2005MCG IVP (TOTAL 2,000MCG)
     Route: 042
     Dates: start: 20060308, end: 20060308
  3. TRASYLOL [Suspect]
     Indication: AORTIC VALVE REPLACEMENT
     Dosage: TEST DOSE (200CC PUMP PRIME) LOADING DOSE (200ML, THEN RATE OF 50ML/HR)
     Route: 042
     Dates: start: 20060308, end: 20060308
  4. PROTAMINE SULFATE [Concomitant]
     Dosage: 20 MG IVP
     Route: 042
     Dates: start: 20060308, end: 20060308
  5. RED BLOOD CELLS [Concomitant]

REACTIONS (13)
  - UNEVALUABLE EVENT [None]
  - PAIN [None]
  - DEPRESSION [None]
  - STRESS [None]
  - ANXIETY [None]
  - FEAR [None]
  - ANHEDONIA [None]
  - RENAL INJURY [None]
  - INJURY [None]
  - MULTI-ORGAN FAILURE [None]
  - RENAL FAILURE [None]
  - RENAL IMPAIRMENT [None]
  - EMOTIONAL DISTRESS [None]
